FAERS Safety Report 24203983 (Version 1)
Quarter: 2024Q3

REPORT INFORMATION
  Report Type: Spontaneous
  Country: FR (occurrence: FR)
  Receive Date: 20240813
  Receipt Date: 20240813
  Transmission Date: 20241016
  Serious: Yes (Hospitalization)
  Sender: RANBAXY
  Company Number: FR-SUN PHARMACEUTICAL INDUSTRIES LTD-2024RR-462300

PATIENT
  Sex: Female
  Weight: 2 kg

DRUGS (9)
  1. ACETAMINOPHEN [Suspect]
     Active Substance: ACETAMINOPHEN
     Indication: Pain management
     Route: 064
  2. NIFEDIPINE [Suspect]
     Active Substance: NIFEDIPINE
     Indication: Product used for unknown indication
     Dosage: UNK
     Route: 064
  3. ATARAX [Suspect]
     Active Substance: HYDROXYZINE HYDROCHLORIDE
     Indication: Product used for unknown indication
     Dosage: UNK
     Route: 064
  4. AMITRIPTYLINE HYDROCHLORIDE [Suspect]
     Active Substance: AMITRIPTYLINE HYDROCHLORIDE
     Indication: Pain management
     Dosage: UNK
     Route: 064
  5. PHLOROGLUCINOL [Suspect]
     Active Substance: PHLOROGLUCINOL
     Indication: Pain management
     Dosage: UNK
     Route: 064
  6. URSODIOL [Suspect]
     Active Substance: URSODIOL
     Indication: Cholelithiasis
     Dosage: UNK
     Route: 064
     Dates: start: 20230216
  7. ONDANSETRON [Suspect]
     Active Substance: ONDANSETRON
     Indication: Pain management
     Dosage: UNK
     Route: 064
  8. NEFOPAM [Suspect]
     Active Substance: NEFOPAM
     Indication: Pain management
     Dosage: UNK
     Route: 064
  9. TRAMADOL [Suspect]
     Active Substance: TRAMADOL\TRAMADOL HYDROCHLORIDE
     Indication: Cholelithiasis
     Dosage: 50 MILLIGRAM
     Route: 064
     Dates: start: 20230216

REACTIONS (6)
  - Maternal exposure during pregnancy [Recovered/Resolved]
  - Foetal growth restriction [Recovered/Resolved]
  - Caesarean section [Recovered/Resolved]
  - Normal newborn [Recovered/Resolved]
  - Maternal exposure during pregnancy [Recovered/Resolved]
  - Term birth [Recovered/Resolved]

NARRATIVE: CASE EVENT DATE: 20230810
